FAERS Safety Report 6215574-8 (Version None)
Quarter: 2009Q2

REPORT INFORMATION
  Report Type: 
  Country: None (occurrence: None)
  Receive Date: 20090605
  Receipt Date: 20090527
  Transmission Date: 20091009
  Serious: Yes (Other)
  Sender: FDA-Public Use
  Company Number: SE-BAXTER-2009BH005204

PATIENT
  Sex: Female

DRUGS (10)
  1. GAMMAGARD LIQUID [Suspect]
     Indication: DEMYELINATING POLYNEUROPATHY
     Route: 042
     Dates: start: 20090304, end: 20090304
  2. GAMMAGARD LIQUID [Suspect]
     Indication: OFF LABEL USE
     Route: 042
     Dates: start: 20090304, end: 20090304
  3. GAMMAGARD LIQUID [Suspect]
     Route: 042
     Dates: start: 20090304, end: 20090304
  4. GAMMAGARD LIQUID [Suspect]
     Route: 042
     Dates: start: 20090304, end: 20090304
  5. GAMMAGARD LIQUID [Suspect]
     Route: 042
     Dates: start: 20090304, end: 20090304
  6. GAMMAGARD LIQUID [Suspect]
     Route: 042
     Dates: start: 20090304, end: 20090304
  7. GAMMAGARD LIQUID [Suspect]
     Route: 042
     Dates: start: 20090304, end: 20090304
  8. GAMMAGARD LIQUID [Suspect]
     Route: 042
     Dates: start: 20090304, end: 20090304
  9. GAMMAGARD LIQUID [Suspect]
     Route: 042
     Dates: start: 20060901
  10. GAMMAGARD LIQUID [Suspect]
     Route: 042
     Dates: start: 20060901

REACTIONS (2)
  - ERYTHEMA [None]
  - PRURITUS [None]
